FAERS Safety Report 5125547-4 (Version None)
Quarter: 2006Q4

REPORT INFORMATION
  Report Type: 
  Country: None (occurrence: None)
  Receive Date: 20061006
  Receipt Date: 20060919
  Transmission Date: 20070319
  Serious: Yes (Life-Threatening, Hospitalization)
  Sender: FDA-Public Use
  Company Number: 2006BH011333

PATIENT
  Age: 60 Year
  Sex: Female

DRUGS (47)
  1. EXTRANEAL [Suspect]
     Indication: RENAL FAILURE CHRONIC
     Dosage: 2.5 L; AT BEDTIME; IP
     Route: 033
     Dates: start: 20060314, end: 20060101
  2. SODIUM CHLORIDE 0.9% [Concomitant]
  3. AZTREONAM [Concomitant]
  4. CEFEPIME HYDROCHLORIDE [Concomitant]
  5. ISO-OSMOTIC SOLUTION [Concomitant]
  6. LEVOFLOXACIN/DEXTRO [Concomitant]
  7. LEVOFLOXACIN DEXTROSE [Concomitant]
  8. METRONIDAZOLE HYDRO [Concomitant]
  9. SULFAMETHOXAZOLE + TRIMETHOPRIM [Concomitant]
  10. VANCOMYCIN HYDROCHLORIDE [Concomitant]
  11. AMLODIPINE BESYLATE [Concomitant]
  12. CLONIDINE HCL [Concomitant]
  13. MINOXIDIL [Concomitant]
  14. SIMVASTATIN [Concomitant]
  15. ASPIRIN [Concomitant]
  16. DIAZEPAM [Concomitant]
  17. DIVALPROEX SODIUM [Concomitant]
  18. FOSPHENYTOIN SODIUM [Concomitant]
  19. HYDROCODONE BITARTRATE [Concomitant]
  20. HYDROMORPHONE HYDROCHLORIDE [Concomitant]
  21. HYDROXYZINE HYDROCHLORIDE [Concomitant]
  22. LORAZEPAM [Concomitant]
  23. MIDAZOLAM HYDROCHLORIDE [Concomitant]
  24. MIRTAZAPINE [Concomitant]
  25. MODAFINIL [Concomitant]
  26. PAROXETINE MESYLATE [Concomitant]
  27. VALPROIC ACID [Concomitant]
  28. ZOLPIDEM TARTRATE [Concomitant]
  29. CALCIUM ACETATE [Concomitant]
  30. GLUCOSE (DEXTROSE) SOLUTION FOR INTRAVENOUS INFUSION 20% [Concomitant]
  31. ISO-OSMOTIC SOLUTION [Concomitant]
  32. LEVOFLOXACIN/DEXTRO [Concomitant]
  33. VANCOMYCIN HYDROCHLORIDE [Concomitant]
  34. FOSPHENYTOIN SODIUM [Concomitant]
  35. METRONIDAZOLE HYDRO [Concomitant]
  36. DEXAMETHASONE SOD PHO [Concomitant]
  37. AMYLASE W/LIPASE/PROTEASE [Concomitant]
  38. DOCUSATE SODIUM [Concomitant]
  39. METOCLOPRAMIDE HYDROCHLORIDE [Concomitant]
  40. PANTOPRAZOLE SODIUM [Concomitant]
  41. HYDROCORTISONE ACETATE [Concomitant]
  42. INSULIN ANALOG [Concomitant]
  43. LEVOTHYROXINE SODIUM [Concomitant]
  44. MULTIVITAMINS, THERAPE [Concomitant]
  45. CLOPIDOGREL BISULFATE [Concomitant]
  46. SACCHAROMYCES BOULARD [Concomitant]
  47. INSULIN INHALATION CH [Concomitant]

REACTIONS (11)
  - BLOOD GLUCOSE INCREASED [None]
  - DEVICE INTERACTION [None]
  - HAEMODIALYSIS [None]
  - HYPOGLYCAEMIC COMA [None]
  - HYPONATRAEMIA [None]
  - HYPOTENSION [None]
  - INCISIONAL HERNIA REPAIR [None]
  - OSTEOARTHRITIS [None]
  - RENAL FAILURE CHRONIC [None]
  - SEPSIS [None]
  - URINARY TRACT INFECTION [None]
